FAERS Safety Report 11455834 (Version 1)
Quarter: 2015Q3

REPORT INFORMATION
  Report Type: Report from Study
  Country: US (occurrence: US)
  Receive Date: 20150903
  Receipt Date: 20150903
  Transmission Date: 20151125
  Serious: No
  Sender: FDA-Public Use
  Company Number: US-AMGEN-USASL2015089182

PATIENT
  Age: 51 Year
  Sex: Female

DRUGS (2)
  1. ENBREL [Suspect]
     Active Substance: ETANERCEPT
     Indication: PSORIATIC ARTHROPATHY
     Dosage: QWK
     Route: 065
     Dates: start: 2014, end: 2015
  2. METHOTREXATE [Concomitant]
     Active Substance: METHOTREXATE
     Dosage: TABLETS OF 7.5 MG, QWK

REACTIONS (5)
  - Disease progression [Unknown]
  - Drug effect decreased [Unknown]
  - Pain [Unknown]
  - Nodule [Unknown]
  - General symptom [Unknown]

NARRATIVE: CASE EVENT DATE: 2015
